FAERS Safety Report 7531584-2 (Version None)
Quarter: 2011Q2

REPORT INFORMATION
  Report Type: 
  Country: None (occurrence: None)
  Receive Date: 20110608
  Receipt Date: 20110606
  Transmission Date: 20111010
  Serious: No
  Sender: FDA-Public Use
  Company Number: HU-ABBOTT-11P-076-0727459-00

PATIENT
  Sex: Female
  Weight: 80.2 kg

DRUGS (12)
  1. FAMOTIDINE [Concomitant]
     Dosage: 40 MG DAILY (20 MG X 2)
     Route: 048
     Dates: start: 20110527
  2. ZEMPLAR [Suspect]
     Dosage: WITH DIALYSIS
     Route: 042
  3. ARANESP [Concomitant]
     Indication: ANAEMIA
     Dosage: 1 X 10 MCG MONTHLY
     Route: 042
     Dates: start: 20110527
  4. CHINOTAL [Concomitant]
     Indication: PRODUCT USED FOR UNKNOWN INDICATION
     Dosage: 800MG DAILY, 2X400MG
     Route: 048
     Dates: start: 20100125, end: 20110519
  5. FAMOTIDINE [Concomitant]
     Indication: PRODUCT USED FOR UNKNOWN INDICATION
     Dosage: 60MG DAILY, 3X20MG
     Route: 048
     Dates: start: 20110125, end: 20110526
  6. ZEMPLAR [Suspect]
     Indication: RENAL FAILURE CHRONIC
     Dosage: 5MCG/ML, WITH DIALYSIS
     Route: 042
     Dates: start: 20110112
  7. SEVELAMER [Concomitant]
     Indication: PRODUCT USED FOR UNKNOWN INDICATION
     Dosage: 7200MG 3X(3X800MG)
     Route: 048
     Dates: start: 20100205
  8. SILYMARIN [Concomitant]
     Indication: PRODUCT USED FOR UNKNOWN INDICATION
     Dosage: 2X
     Route: 048
     Dates: start: 20100125
  9. CHINOTAL [Concomitant]
     Dosage: 800MG DAILY, 2X400MG
     Route: 048
     Dates: start: 20110527
  10. PENTOXIFYLLINE [Concomitant]
     Indication: PRODUCT USED FOR UNKNOWN INDICATION
     Dosage: 100 DAILY
     Route: 042
     Dates: start: 20110520, end: 20110526
  11. RAMIPRIL [Concomitant]
     Indication: PRODUCT USED FOR UNKNOWN INDICATION
     Route: 048
     Dates: start: 20100125
  12. CINACALCET HYDROCHLORIDE [Concomitant]
     Indication: PRODUCT USED FOR UNKNOWN INDICATION
     Route: 048
     Dates: start: 20100125

REACTIONS (2)
  - VERTIGO [None]
  - PAIN IN EXTREMITY [None]
